FAERS Safety Report 19416255 (Version 1)
Quarter: 2021Q2

REPORT INFORMATION
  Report Type: Spontaneous
  Country: CN (occurrence: CN)
  Receive Date: 20210614
  Receipt Date: 20210614
  Transmission Date: 20210717
  Serious: Yes (Life-Threatening, Hospitalization, Other)
  Sender: FDA-Public Use
  Company Number: CN-PFIZER INC-2021635600

PATIENT
  Age: 76 Year
  Sex: Male
  Weight: 50 kg

DRUGS (4)
  1. METHYLPREDNISOLONE SODIUM SUCCINATE. [Suspect]
     Active Substance: METHYLPREDNISOLONE SODIUM SUCCINATE
     Indication: LUNG NEOPLASM MALIGNANT
     Dosage: 40 MG, 1X/DAY
     Route: 041
     Dates: start: 20210519, end: 20210519
  2. METHYLPREDNISOLONE SODIUM SUCCINATE. [Suspect]
     Active Substance: METHYLPREDNISOLONE SODIUM SUCCINATE
     Indication: PNEUMONIA
     Dosage: 40 MG, 1X/DAY
     Route: 041
     Dates: start: 20210515, end: 20210515
  3. SODIUM CHLORIDE. [Concomitant]
     Active Substance: SODIUM CHLORIDE
     Indication: LUNG NEOPLASM MALIGNANT
     Dosage: 100 ML, 1X/DAY
     Route: 041
     Dates: start: 20210519, end: 20210519
  4. SODIUM CHLORIDE. [Concomitant]
     Active Substance: SODIUM CHLORIDE
     Indication: PNEUMONIA
     Dosage: 100 ML, 1X/DAY
     Route: 041
     Dates: start: 20210515, end: 20210515

REACTIONS (4)
  - Pneumonia [Unknown]
  - Off label use [Unknown]
  - Pulmonary tuberculosis [Unknown]
  - Respiratory failure [Unknown]

NARRATIVE: CASE EVENT DATE: 20210515
